FAERS Safety Report 20388124 (Version 4)
Quarter: 2022Q2

REPORT INFORMATION
  Report Type: Spontaneous
  Country: JP (occurrence: JP)
  Receive Date: 20220128
  Receipt Date: 20220404
  Transmission Date: 20220720
  Serious: Yes (Life-Threatening, Hospitalization, Other)
  Sender: FDA-Public Use
  Company Number: JP-TEVA-2022-JP-2003114

PATIENT
  Age: 8 Decade
  Sex: Female

DRUGS (6)
  1. TRISENOX [Suspect]
     Active Substance: ARSENIC TRIOXIDE
     Indication: Product used for unknown indication
     Dosage: .15 MG/KG DAILY;
     Route: 042
  2. TRISENOX [Suspect]
     Active Substance: ARSENIC TRIOXIDE
     Dosage: .075 MG/KG DAILY;
     Route: 042
  3. TRISENOX [Suspect]
     Active Substance: ARSENIC TRIOXIDE
     Dosage: .075 MG/KG DAILY;
     Route: 042
  4. TRISENOX [Suspect]
     Active Substance: ARSENIC TRIOXIDE
     Dosage: .15 MG/KG DAILY;
     Route: 042
  5. TRISENOX [Suspect]
     Active Substance: ARSENIC TRIOXIDE
     Dosage: .15 MG/KG DAILY;
     Route: 042
  6. VESANOID [Concomitant]
     Active Substance: TRETINOIN
     Indication: Product used for unknown indication
     Route: 065

REACTIONS (2)
  - Electrocardiogram QT prolonged [Recovered/Resolved]
  - Electrocardiogram QT prolonged [Recovered/Resolved]
